FAERS Safety Report 21650943 (Version 2)
Quarter: 2023Q1

REPORT INFORMATION
  Report Type: Report from Study
  Country: CO (occurrence: CO)
  Receive Date: 20221128
  Receipt Date: 20230127
  Transmission Date: 20230418
  Serious: Yes (Other)
  Sender: FDA-Public Use
  Company Number: CO-002147023-NVSC2021CO204665

PATIENT
  Sex: Female
  Weight: 61 kg

DRUGS (3)
  1. ELTROMBOPAG OLAMINE [Suspect]
     Active Substance: ELTROMBOPAG OLAMINE
     Indication: Immune thrombocytopenia
     Dosage: 50 MG, QD
     Route: 048
     Dates: start: 202011
  2. ELTROMBOPAG OLAMINE [Suspect]
     Active Substance: ELTROMBOPAG OLAMINE
     Dosage: 25 MG, QD
     Route: 048
  3. ELTROMBOPAG OLAMINE [Suspect]
     Active Substance: ELTROMBOPAG OLAMINE
     Dosage: UNK
     Route: 048

REACTIONS (8)
  - Platelet count decreased [Unknown]
  - Illness [Unknown]
  - Liver disorder [Not Recovered/Not Resolved]
  - Spinal disorder [Unknown]
  - Platelet count abnormal [Unknown]
  - Platelet count increased [Unknown]
  - Disease recurrence [Unknown]
  - Product supply issue [Unknown]
